FAERS Safety Report 6686037-0 (Version None)
Quarter: 2010Q2

REPORT INFORMATION
  Report Type: 
  Country: None (occurrence: None)
  Receive Date: 20100414
  Receipt Date: 20100401
  Transmission Date: 20101027
  Serious: Yes (Hospitalization)
  Sender: FDA-Public Use
  Company Number: 1000013053

PATIENT
  Age: 50 Year
  Sex: Male

DRUGS (1)
  1. ESCITALOPRAM [Suspect]
     Dosage: 10 MG (10 MG, 1 IN 1 D)

REACTIONS (4)
  - CEREBROVASCULAR ACCIDENT [None]
  - HYPOTONIA [None]
  - OVERDOSE [None]
  - SALIVARY HYPERSECRETION [None]
